FAERS Safety Report 25189190 (Version 2)
Quarter: 2025Q2

REPORT INFORMATION
  Report Type: Spontaneous
  Country: US (occurrence: US)
  Receive Date: 20250411
  Receipt Date: 20250522
  Transmission Date: 20250716
  Serious: No
  Sender: INSUD PHARMA
  Company Number: US-INSUD PHARMA-2503US02584

PATIENT

DRUGS (1)
  1. SLYND [Suspect]
     Active Substance: DROSPIRENONE
     Indication: Menstrual disorder
     Route: 048
     Dates: start: 20250102, end: 20250411

REACTIONS (5)
  - Tension [Not Recovered/Not Resolved]
  - Migraine [Not Recovered/Not Resolved]
  - Polymenorrhoea [Recovered/Resolved]
  - Intermenstrual bleeding [Recovered/Resolved]
  - Product use in unapproved indication [Unknown]

NARRATIVE: CASE EVENT DATE: 20250101
